FAERS Safety Report 8960620 (Version 1)
Quarter: 2012Q4

REPORT INFORMATION
  Report Type: Spontaneous
  Country: GR (occurrence: None)
  Receive Date: 20121130
  Receipt Date: 20121130
  Transmission Date: 20130627
  Serious: Yes (Other)
  Sender: FDA-Public Use
  Company Number: ENTC2012-0531

PATIENT
  Sex: Female

DRUGS (2)
  1. STALEVO (LEVODOPA, CARBIDOPA, ENTACAPONE) [Suspect]
     Indication: PARKINSON^S DISEASE
  2. MIRAPEXIN [Concomitant]

REACTIONS (5)
  - Dizziness [None]
  - Depression [None]
  - Diabetes mellitus [None]
  - Colitis [None]
  - Nausea [None]
